FAERS Safety Report 8171519-5 (Version None)
Quarter: 2012Q1

REPORT INFORMATION
  Report Type: 
  Country: None (occurrence: None)
  Receive Date: 20120104
  Receipt Date: 20111110
  Transmission Date: 20120608
  Serious: No
  Sender: FDA-Public Use
  Company Number: 2011HGS-002771

PATIENT
  Age: 48 Year
  Sex: Female
  Weight: 73.4827 kg

DRUGS (15)
  1. BENLYSTA [Suspect]
     Indication: SYSTEMIC LUPUS ERYTHEMATOSUS
     Dosage: 1 IN 28 D, INTRAVENOUS DRIP
     Route: 041
  2. LIPITOR [Concomitant]
  3. ECHINACEA (ECHINACHEA PURPUREA) [Concomitant]
  4. CELEBREX [Concomitant]
  5. ZYRTEC [Concomitant]
  6. TYLENOL ARTHRITIS (PARACETAMOL) [Concomitant]
  7. NIACIN [Concomitant]
  8. COQ10 (UBIDECARENONE) [Concomitant]
  9. VITAMIN A [Concomitant]
  10. VITAMIN B3 (NICOTINIC ACID) [Concomitant]
  11. FISH OIL / OMEGA-3 (FISH OIL) [Concomitant]
  12. VITAMIN B12 [Concomitant]
  13. PLAQUENIL [Concomitant]
  14. ONE A DAY MENOPAUSAL WOMEN'S VITAMIN (ONE-A-DAY) (ERGOCALCIFEROL, ASCO [Concomitant]
  15. LUTEIN (XANTOFYL) [Concomitant]

REACTIONS (2)
  - RHINORRHOEA [None]
  - DYSPHAGIA [None]
